FAERS Safety Report 14462965 (Version 1)
Quarter: 2018Q1

REPORT INFORMATION
  Report Type: Spontaneous
  Country: SG (occurrence: SG)
  Receive Date: 20180130
  Receipt Date: 20180130
  Transmission Date: 20180509
  Serious: Yes (Death)
  Sender: FDA-Public Use
  Company Number: SG-ACTELION-A-US2018-166857

PATIENT
  Sex: Female

DRUGS (1)
  1. VENTAVIS [Suspect]
     Active Substance: ILOPROST
     Indication: PRODUCT USED FOR UNKNOWN INDICATION
     Dosage: 2.5 MCG, 4-5X/WEEK
     Route: 065
     Dates: start: 20171110

REACTIONS (1)
  - Death [Fatal]

NARRATIVE: CASE EVENT DATE: 20180108
